FAERS Safety Report 19041059 (Version 1)
Quarter: 2021Q1

REPORT INFORMATION
  Report Type: Spontaneous
  Country: US (occurrence: US)
  Receive Date: 20210322
  Receipt Date: 20210322
  Transmission Date: 20210420
  Serious: Yes (Hospitalization, Other)
  Sender: FDA-Public Use
  Company Number: US-JNJFOC-20210317553

PATIENT
  Age: 48 Year
  Sex: Male

DRUGS (2)
  1. EPOPROSTENOL SODIUM. [Suspect]
     Active Substance: EPOPROSTENOL SODIUM
     Indication: VENTRICULAR ASSIST DEVICE INSERTION
     Dosage: INITIATED 30 MIN BEFORE INTRAOPERATIVE HEPARIN ADMINISTRATION
     Route: 042
  2. EPOPROSTENOL SODIUM. [Suspect]
     Active Substance: EPOPROSTENOL SODIUM
     Dosage: TITRATION TO A DOSE OF 30 NG/KG/MIN
     Route: 042

REACTIONS (4)
  - Product use in unapproved indication [Unknown]
  - Disseminated intravascular coagulation [Unknown]
  - Off label use [Unknown]
  - Ventricular assist device insertion [Unknown]
